FAERS Safety Report 7636992-7 (Version None)
Quarter: 2011Q3

REPORT INFORMATION
  Report Type: 
  Country: None (occurrence: None)
  Receive Date: 20110726
  Receipt Date: 20090501
  Transmission Date: 20111222
  Serious: Yes (Hospitalization, Other)
  Sender: FDA-Public Use
  Company Number: US-BAYER-US-2006-018730

PATIENT
  Age: 75 Year
  Sex: Male
  Weight: 103 kg

DRUGS (57)
  1. FUROSEMIDE [Concomitant]
     Dosage: 120 MG, 3X/DAY X 2DAYS
     Dates: start: 20050801, end: 20050801
  2. FUROSEMIDE [Concomitant]
     Dosage: 80 MG, MORNING
     Route: 048
     Dates: start: 20050902
  3. OMEPRAZOLE [Concomitant]
     Dosage: 30 MG, 1X/DAY
     Route: 048
     Dates: start: 20050101
  4. PROCRIT [Concomitant]
  5. CARVEDILOL [Concomitant]
     Dosage: 25 MG, 2X/DAY
     Route: 048
     Dates: end: 20050902
  6. WARFARIN SODIUM [Concomitant]
     Dosage: 7.5 MG, 1X/DAY
     Route: 048
     Dates: start: 20050915, end: 20051018
  7. ISOPHANE INSULIN [Concomitant]
     Dosage: 20-35 U, BREAKFAST/DINNER
     Route: 058
     Dates: end: 20050801
  8. METOLAZONE [Concomitant]
     Dosage: 2.5 MG, 2X/WEEK
     Route: 048
     Dates: start: 20050902
  9. INSULIN [Concomitant]
     Dosage: SLIDING SCALE, AC
     Route: 058
     Dates: start: 20050915
  10. EPOGEN [Concomitant]
     Dosage: 6700, 2X/WEEK
     Dates: start: 20060110
  11. INSULIN HUMAN [Concomitant]
     Dosage: UNK, B.MEAL
     Route: 058
  12. INSULIN HUMAN INJECTION, ISOPHANE [Concomitant]
     Dosage: 8 UNITS, MORNING
  13. FUROSEMIDE [Concomitant]
  14. NEPHROVITE [VIT C,VIT H,B5,B12,B9,B3,B6,B2,B1 HCL] [Concomitant]
  15. MAGNEVIST [Suspect]
     Indication: NUCLEAR MAGNETIC RESONANCE IMAGING
     Dosage: 20 ML, ONCE
     Route: 042
     Dates: start: 20050623, end: 20050623
  16. MAGNEVIST [Suspect]
     Indication: ANGIOGRAM
     Dosage: 28 ML, 1 DOSE
     Route: 042
     Dates: start: 20050907, end: 20050907
  17. FUROSEMIDE [Concomitant]
     Dosage: 40 MG, 2X/DAY
     Route: 048
     Dates: start: 20060213
  18. CARVEDILOL [Concomitant]
     Dosage: 12.5 MG, 2X/DAY
     Route: 048
     Dates: start: 20050902
  19. NICOTINIC ACID [Concomitant]
     Dosage: 100 MG, 1X/DAY
     Route: 048
  20. WARFARIN SODIUM [Concomitant]
     Dosage: 10 MG, 2X/WEEK
     Route: 048
     Dates: start: 20020301
  21. WARFARIN SODIUM [Concomitant]
     Dosage: 7.5 MG, 3X/WEEK
     Route: 048
     Dates: start: 20051222, end: 20060202
  22. INSULIN HUMAN INJECTION, ISOPHANE [Concomitant]
     Dosage: 8 U, BREAKFAST
     Route: 058
     Dates: start: 20060110
  23. PENTOXIFYLLINE [Concomitant]
     Dosage: 400 MG, 3X/DAY
     Route: 048
     Dates: start: 20050818
  24. EPOGEN [Concomitant]
     Dosage: 6000 U
     Dates: start: 20051122
  25. NITROGLYCERIN [Concomitant]
  26. ENALAPRIL MALEATE [Concomitant]
     Dosage: 20 MG, 2X/DAY
     Route: 048
  27. AMLODIPINE BESYLATE [Concomitant]
     Dosage: 5 MG, 1X/DAY
  28. METOLAZONE [Concomitant]
     Dosage: 2.5 MG, 3X/WEEK
     Route: 048
     Dates: start: 20050801, end: 20050902
  29. INSULIN [Concomitant]
     Dosage: 15 OTHER, 2X/DAY [DAILY DOSE: 30 OTHER] [TOTAL DOSE: 390 OTHER]
     Route: 058
     Dates: start: 20050902, end: 20050915
  30. OMEPRAZOLE [Concomitant]
     Dosage: 20 MG, 1X/DAY
     Route: 048
  31. INSULIN HUMAN INJECTION, ISOPHANE [Concomitant]
     Dosage: 10 U, EVENING
  32. ISOSORBIDE MONONITRATE [Concomitant]
  33. EPOGEN [Concomitant]
  34. FUROSEMIDE [Concomitant]
     Dosage: 40 MG, EVENING
     Route: 048
     Dates: start: 20050902, end: 20060213
  35. WARFARIN SODIUM [Concomitant]
     Dosage: 10 MG, 4X/WEEK
     Route: 048
     Dates: start: 20051222, end: 20060202
  36. WARFARIN SODIUM [Concomitant]
     Dosage: 10 MG, 1X/DAY
     Route: 048
     Dates: start: 20060202
  37. INSULIN HUMAN INJECTION, ISOPHANE [Concomitant]
     Dosage: 5-10U, BREAKFAST/DINNER
     Dates: start: 20051122, end: 20060110
  38. ISOPHANE INSULIN [Concomitant]
     Dosage: 15 U, BREAKFAST/DINNER
     Route: 058
     Dates: start: 20050804
  39. LANSOPRAZOLE [Concomitant]
     Dosage: 30 MG, 1X/DAY
     Dates: start: 20050801
  40. EPOGEN [Concomitant]
     Dosage: 4500 U
     Dates: start: 20051222
  41. COREG [Concomitant]
  42. FUROSEMIDE [Concomitant]
     Dosage: 80 MG, 2X/DAY
     Route: 048
     Dates: end: 20050815
  43. INSULIN HUMAN INJECTION, ISOPHANE [Concomitant]
     Dosage: 10 U, DINNER
     Route: 058
     Dates: start: 20060110
  44. IRBESARTAN [Concomitant]
     Dosage: 150 MG, 1X/DAY
     Route: 048
  45. EPOGEN [Concomitant]
     Dosage: 5000U
     Dates: start: 20050915
  46. OMEPRAZOLE [Concomitant]
     Dosage: 10 MG, 1X/DAY
     Route: 048
  47. INSULIN HUMAN INJECTION, ISOPHANE [Concomitant]
     Dosage: 30 U, BREAKFAST/DINNER
     Route: 058
     Dates: end: 20050801
  48. INSULIN HUMAN INJECTION, ISOPHANE [Concomitant]
     Dosage: 15 U, BREAKFAST/DINNER
     Route: 058
     Dates: start: 20050801, end: 20050902
  49. INSULIN HUMAN INJECTION, ISOPHANE [Concomitant]
     Dosage: 20 U, BREAKFAST/DINNER
     Route: 058
     Dates: start: 20050902, end: 20051122
  50. WARFARIN SODIUM [Concomitant]
     Dosage: 15 MG, 5X/WEEK
     Route: 048
     Dates: end: 20050915
  51. WARFARIN SODIUM [Concomitant]
     Dosage: 5 MG, 3X/WEEK
     Route: 048
     Dates: start: 20051018, end: 20051122
  52. WARFARIN SODIUM [Concomitant]
     Dosage: 2.5 MG, 4X/WEEK
     Dates: start: 20051018, end: 20051122
  53. WARFARIN SODIUM [Concomitant]
     Dosage: 7.5 MG, 1X/DAY
     Route: 048
     Dates: start: 20051122, end: 20051222
  54. SIMVASTATIN [Concomitant]
     Dosage: 40 MG, 1X/DAY
     Route: 048
  55. ISOPHANE INSULIN [Concomitant]
     Dosage: 8 U, BREAKFAST/DINNER [DAILY DOSE: 16 OTHER]
     Route: 058
     Dates: start: 20051018
  56. SYNTHROID [Concomitant]
  57. PLAVIX [Concomitant]

REACTIONS (12)
  - NEPHROGENIC SYSTEMIC FIBROSIS [None]
  - JOINT CONTRACTURE [None]
  - JOINT STIFFNESS [None]
  - ABASIA [None]
  - SKIN EXFOLIATION [None]
  - SKIN FIBROSIS [None]
  - PAIN IN EXTREMITY [None]
  - MUSCULOSKELETAL STIFFNESS [None]
  - SKIN INDURATION [None]
  - RENAL FAILURE ACUTE [None]
  - MOBILITY DECREASED [None]
  - STASIS DERMATITIS [None]
